FAERS Safety Report 6158803-1 (Version None)
Quarter: 2009Q2

REPORT INFORMATION
  Report Type: 
  Country: None (occurrence: None)
  Receive Date: 20090417
  Receipt Date: 20090406
  Transmission Date: 20091009
  Serious: Yes (Other)
  Sender: FDA-Public Use
  Company Number: IT-JNJFOC-20090402647

PATIENT
  Age: 4 Year
  Sex: Male

DRUGS (9)
  1. DOXORUBICIN HCL [Suspect]
     Dosage: 3 CYCLES OF DOXORUBICIN GIVEN (ASSUMED TO LIPOSOMAL). EACH CYCLE GIVEN OVER 2 CONSECUTIVE DAYS
     Route: 042
  2. DOXORUBICIN HCL [Suspect]
     Dosage: CYCLE 5 - 8 HOUR INFUSION.
     Route: 042
  3. DOXORUBICIN HCL [Suspect]
     Dosage: CYCLE 2-4 - 8 HOUR INFUSION.
     Route: 042
  4. DOXORUBICIN HCL [Suspect]
     Indication: INTRAVASCULAR PAPILLARY ENDOTHELIAL HYPERPLASIA
     Dosage: CYCLE 1 - 8 HOUR INFUSION.
     Route: 042
  5. CARBOPLATIN [Suspect]
     Indication: INTRAVASCULAR PAPILLARY ENDOTHELIAL HYPERPLASIA
     Dosage: DILUTED IN 500CC OF NORMAL SALINE INFUSED OVER 2 HOURS FOR 1 DAY - TOTAL 4 CYCLES GIVEN.
     Route: 065
  6. DACARBAZINE [Concomitant]
     Route: 065
  7. VINCRISTINE [Concomitant]
     Route: 065
  8. DACTINOMYCIN-D [Concomitant]
     Route: 065
  9. ETOPOSIDE [Concomitant]
     Dosage: 1 HOUR INFUSION
     Route: 065

REACTIONS (3)
  - INCORRECT ROUTE OF DRUG ADMINISTRATION [None]
  - NEOPLASM PROGRESSION [None]
  - OFF LABEL USE [None]
